FAERS Safety Report 8550943-2 (Version None)
Quarter: 2012Q3

REPORT INFORMATION
  Report Type: 
  Country: None (occurrence: None)
  Receive Date: 20120730
  Receipt Date: 20110804
  Transmission Date: 20120928
  Serious: No
  Sender: FDA-Public Use
  Company Number: US-ALLERGAN-1110489US

PATIENT
  Sex: Female

DRUGS (1)
  1. LATISSE [Suspect]
     Indication: HYPOTRICHOSIS
     Dosage: 1 GTT, ONE APPLICATOR PER EYE AFTER WHICH IT IS DISCARDED
     Route: 061
     Dates: end: 20110802

REACTIONS (1)
  - SCLERAL HYPERAEMIA [None]
